FAERS Safety Report 5156119-3 (Version None)
Quarter: 2006Q4

REPORT INFORMATION
  Report Type: 
  Country: None (occurrence: None)
  Receive Date: 20061114
  Receipt Date: 20061025
  Transmission Date: 20070319
  Serious: No
  Sender: FDA-Public Use
  Company Number: TPA2006A01914

PATIENT
  Age: 34 Year
  Sex: Female
  Weight: 68.0396 kg

DRUGS (4)
  1. ROZEREM [Suspect]
     Indication: INSOMNIA
     Dosage: 8 MG, @HS AND A SECOND DOSE IN EARLY MORNING, PER ORAL
     Route: 048
     Dates: start: 20061024
  2. CELEXA [Concomitant]
  3. TRAZODONE HCL [Concomitant]
  4. UNKNOWN MEDICATIONS (ALL OTHER THERAPEUTIC PRODUCTS) (UNKNOWN) [Concomitant]

REACTIONS (2)
  - DRUG EFFECT DECREASED [None]
  - EARLY MORNING AWAKENING [None]
